FAERS Safety Report 5306159-6 (Version None)
Quarter: 2007Q2

REPORT INFORMATION
  Report Type: 
  Country: None (occurrence: None)
  Receive Date: 20070420
  Receipt Date: 20070420
  Transmission Date: 20071010
  Serious: Yes (Life-Threatening, Hospitalization, Other)
  Sender: FDA-Public Use
  Company Number: None

PATIENT
  Age: 16 Year
  Sex: Female
  Weight: 53.5244 kg

DRUGS (1)
  1. CORICIDIN [Suspect]
     Indication: COMPLETED SUICIDE
     Dosage: OVER DOSE 32 ONCE ENOUGH ORAL RECREATION 8-16 DAILY ORAL
     Route: 048
     Dates: start: 20050101, end: 20050501

REACTIONS (2)
  - INTENTIONAL DRUG MISUSE [None]
  - SUICIDE ATTEMPT [None]
